FAERS Safety Report 7848102 (Version 6)
Quarter: 2013Q2

REPORT INFORMATION
  Report Type: Report from Study
  Country: JP (occurrence: JP)
  Receive Date: 20110309
  Receipt Date: 20130425
  Transmission Date: 20140414
  Serious: Yes (Hospitalization)
  Sender: FDA-Public Use
  Company Number: JP-CELGENEUS-087-21880-11023106

PATIENT
  Age: 59 Year
  Sex: Male

DRUGS (67)
  1. REVLIMID [Suspect]
     Dosage: 25 MILLIGRAM
     Route: 048
     Dates: start: 20110222, end: 20110307
  2. REVLIMID [Suspect]
     Dosage: 25 MILLIGRAM
     Route: 048
     Dates: start: 20110628, end: 20110718
  3. REVLIMID [Suspect]
     Dosage: 25 MILLIGRAM
     Route: 048
     Dates: start: 20110726, end: 20110808
  4. REVLIMID [Suspect]
     Dosage: 25 MILLIGRAM
     Route: 048
     Dates: start: 20110824, end: 20110913
  5. LENADEX [Suspect]
     Indication: PLASMA CELL MYELOMA
     Dosage: 20 MILLIGRAM
     Route: 048
     Dates: start: 20110223, end: 20110223
  6. LENADEX [Suspect]
     Indication: REFRACTORY CANCER
     Dosage: 20 MILLIGRAM
     Route: 048
     Dates: start: 20110226, end: 20110226
  7. LENADEX [Suspect]
     Dosage: 20 MILLIGRAM
     Route: 048
     Dates: start: 20110302, end: 20110302
  8. LENADEX [Suspect]
     Dosage: 20 MILLIGRAM
     Route: 048
     Dates: start: 20110305, end: 20110305
  9. LENADEX [Suspect]
     Dosage: 40 MILLIGRAM
     Route: 048
     Dates: start: 20110628, end: 20110701
  10. LENADEX [Suspect]
     Dosage: 40 MILLIGRAM
     Route: 048
     Dates: start: 20110726, end: 20110729
  11. LENADEX [Suspect]
     Dosage: 40 MILLIGRAM
     Route: 048
     Dates: start: 20110824, end: 20110827
  12. DEXART [Concomitant]
     Indication: PLASMA CELL MYELOMA
     Dosage: 16.5 MILLIGRAM
     Route: 041
     Dates: start: 20101221, end: 20101221
  13. DEXART [Concomitant]
     Indication: REFRACTORY CANCER
     Dosage: 16.5 MILLIGRAM
     Route: 041
     Dates: start: 20101228, end: 20101228
  14. VELCADE [Concomitant]
     Indication: PLASMA CELL MYELOMA
     Dosage: 1.3 MILLIGRAM/SQ. METER
     Route: 041
     Dates: start: 20101221, end: 20101221
  15. VELCADE [Concomitant]
     Indication: REFRACTORY CANCER
     Dosage: 1.3 MILLIGRAM/SQ. METER
     Route: 041
     Dates: start: 20101228, end: 20101228
  16. VELCADE [Concomitant]
     Dosage: 7.78 MILLIGRAM/SQ. METER
     Route: 041
     Dates: start: 20110111, end: 20110121
  17. VELCADE [Concomitant]
     Dosage: 7.78 MILLIGRAM/SQ. METER
     Route: 041
     Dates: start: 20110201, end: 20110211
  18. VELCADE [Concomitant]
     Dosage: 7.78 MILLIGRAM
     Route: 041
     Dates: start: 20110222, end: 20110304
  19. LASIX [Concomitant]
     Indication: CARDIAC FAILURE
     Dosage: 120 MILLIGRAM
     Route: 041
     Dates: start: 20101218, end: 20101229
  20. ROCEPHIN [Concomitant]
     Indication: PROPHYLAXIS
     Dosage: 1 GRAM
     Route: 041
     Dates: start: 20101223, end: 20101224
  21. FUNGUARD [Concomitant]
     Indication: PROPHYLAXIS
     Dosage: 150 MILLIGRAM
     Route: 041
     Dates: start: 20101224, end: 20110104
  22. KYTRIL [Concomitant]
     Indication: PROPHYLAXIS
     Dosage: 3 MILLIGRAM
     Route: 041
     Dates: start: 20101221, end: 20101228
  23. KYTRIL [Concomitant]
     Dosage: 6 MILLIGRAM
     Route: 041
     Dates: start: 20110111, end: 20110304
  24. ACYCRIL [Concomitant]
     Indication: PROPHYLAXIS
     Dosage: 500 MILLIGRAM
     Route: 041
     Dates: start: 20101224, end: 20110111
  25. DENOSINE [Concomitant]
     Indication: PROPHYLAXIS
     Dosage: 125 MILLIGRAM
     Route: 041
     Dates: start: 20101224, end: 20101224
  26. KAYTWO N [Concomitant]
     Indication: PRODUCT USED FOR UNKNOWN INDICATION
     Dosage: 10 MILLIGRAM
     Route: 041
     Dates: start: 20101224, end: 20101229
  27. ZOSYN [Concomitant]
     Indication: PROPHYLAXIS
     Dosage: 2.25 GRAM
     Route: 041
     Dates: start: 20101224, end: 20101229
  28. ZYLORIC [Concomitant]
     Indication: PROPHYLAXIS
     Dosage: 200 MILLIGRAM
     Route: 048
     Dates: start: 20101216, end: 20101220
  29. ZYLORIC [Concomitant]
     Dosage: 100 MILLIGRAM
     Route: 048
     Dates: start: 20101221, end: 20110110
  30. JU-KAMA [Concomitant]
     Indication: PROPHYLAXIS
     Dosage: 2 GRAM
     Route: 048
     Dates: start: 20101216, end: 20110110
  31. FUNGIZONE [Concomitant]
     Indication: PROPHYLAXIS
     Dosage: 16 MILLILITER
     Route: 048
     Dates: start: 20101216, end: 20110110
  32. FUNGIZONE [Concomitant]
     Dosage: 8 MILLILITER
     Route: 048
     Dates: start: 20110111, end: 20110307
  33. IMMUNOGLOBULIN [Concomitant]
     Indication: PROPHYLAXIS
     Dosage: ADEQUATE DOSE
     Route: 062
     Dates: start: 20101216, end: 20110110
  34. IMMUNOGLOBULIN [Concomitant]
     Dosage: QI
     Route: 062
     Dates: start: 20110111, end: 20110307
  35. OXINORM [Concomitant]
     Indication: PRODUCT USED FOR UNKNOWN INDICATION
     Route: 048
     Dates: start: 20101216, end: 20101229
  36. OXYCONTIN [Concomitant]
     Indication: PRODUCT USED FOR UNKNOWN INDICATION
     Dosage: 10 MILLIGRAM
     Route: 048
     Dates: start: 20101216, end: 20110110
  37. OXYCONTIN [Concomitant]
     Dosage: 10 MILLIGRAM
     Route: 048
     Dates: start: 20110111, end: 20110307
  38. NOVAMIN [Concomitant]
     Indication: PROPHYLAXIS
     Dosage: 15 MILLIGRAM
     Route: 048
     Dates: start: 20101216, end: 20110110
  39. NOVAMIN [Concomitant]
     Dosage: 15 MILLIGRAM
     Route: 048
     Dates: start: 20110111, end: 20110307
  40. PURSENNID [Concomitant]
     Indication: PRODUCT USED FOR UNKNOWN INDICATION
     Route: 048
     Dates: start: 20101216, end: 20110110
  41. PURSENNID [Concomitant]
     Dosage: 24 MILLIGRAM
     Route: 048
     Dates: start: 20110111, end: 20110307
  42. WINTERMIN [Concomitant]
     Indication: PRODUCT USED FOR UNKNOWN INDICATION
     Route: 048
     Dates: start: 20101219, end: 20101225
  43. BAYASPIRIN [Concomitant]
     Indication: PROPHYLAXIS
     Dosage: 100 MILLIGRAM
     Route: 048
     Dates: start: 20101220, end: 20110307
  44. DESYREL [Concomitant]
     Indication: PRODUCT USED FOR UNKNOWN INDICATION
     Dosage: 50 MILLIGRAM
     Route: 048
     Dates: start: 20101222, end: 20110307
  45. TETRAMIDE [Concomitant]
     Indication: PRODUCT USED FOR UNKNOWN INDICATION
     Dosage: 10 MILLIGRAM
     Route: 048
     Dates: start: 20101222, end: 20101222
  46. CALONAL [Concomitant]
     Indication: PRODUCT USED FOR UNKNOWN INDICATION
     Route: 048
     Dates: start: 20101223, end: 20101224
  47. SEROQUEL [Concomitant]
     Indication: PRODUCT USED FOR UNKNOWN INDICATION
     Dosage: 50 MILLIGRAM
     Route: 048
     Dates: start: 20101225, end: 20101225
  48. ZYPREXA [Concomitant]
     Indication: PRODUCT USED FOR UNKNOWN INDICATION
     Dosage: 5 MILLIGRAM
     Route: 048
     Dates: start: 20101225, end: 20101225
  49. LAXOBERON [Concomitant]
     Indication: PRODUCT USED FOR UNKNOWN INDICATION
     Dosage: 15 DROPS
     Route: 048
     Dates: start: 20101226, end: 20110105
  50. LECICARBON [Concomitant]
     Indication: PRODUCT USED FOR UNKNOWN INDICATION
     Dosage: 1
     Route: 065
     Dates: start: 20101226, end: 20110307
  51. LYRICA [Concomitant]
     Indication: NEUROPATHY PERIPHERAL
     Dosage: 75 MILLIGRAM
     Route: 048
     Dates: start: 20101227, end: 20110109
  52. KENEI G [Concomitant]
     Indication: PRODUCT USED FOR UNKNOWN INDICATION
     Dosage: 60 MILLILITER
     Route: 065
     Dates: start: 20101230, end: 20110103
  53. KENEI G [Concomitant]
     Route: 065
     Dates: start: 20110118, end: 20110118
  54. DEXAMETHASONE [Concomitant]
     Indication: PLASMA CELL MYELOMA
     Dosage: 132 MILLIGRAM
     Route: 041
     Dates: start: 20110111, end: 20110121
  55. DEXAMETHASONE [Concomitant]
     Indication: REFRACTORY CANCER
     Dosage: 132 MILLIGRAM
     Route: 041
     Dates: start: 20110201, end: 20110211
  56. DEXAMETHASONE [Concomitant]
     Dosage: 66 MILLIGRAM
     Route: 041
     Dates: start: 20110222, end: 20110304
  57. MAGNESIUM OXIDE [Concomitant]
     Indication: PRODUCT USED FOR UNKNOWN INDICATION
     Dosage: 2.01 GRAM
     Route: 048
     Dates: start: 20110111, end: 20110307
  58. MUCODYNE [Concomitant]
     Indication: PROPHYLAXIS
     Dosage: 1500 MILLIGRAM
     Route: 048
     Dates: start: 20110111, end: 20110307
  59. MUCOSOLVAN [Concomitant]
     Indication: PROPHYLAXIS
     Dosage: 45 MILLIGRAM
     Route: 048
     Dates: start: 20110111, end: 20110307
  60. OMEPRAL [Concomitant]
     Indication: PROPHYLAXIS
     Dosage: 20 MILLIGRAM
     Route: 048
     Dates: start: 20110111, end: 20110307
  61. BAKTAR [Concomitant]
     Indication: PROPHYLAXIS
     Dosage: 1 GRAM
     Route: 048
     Dates: start: 20110111, end: 20110307
  62. ZOVIRAX [Concomitant]
     Indication: PROPHYLAXIS
     Dosage: 200 MILLIGRAM
     Route: 048
     Dates: start: 20110111, end: 20110307
  63. ISODINE GARGLE [Concomitant]
     Indication: PROPHYLAXIS
     Dosage: Q.I
     Route: 048
     Dates: start: 20110111, end: 20110307
  64. REVLIMID [Suspect]
     Indication: PLASMA CELL MYELOMA
     Dosage: 25 MILLIGRAM
     Route: 048
     Dates: start: 20101221, end: 20101221
  65. REVLIMID [Suspect]
     Indication: REFRACTORY CANCER
     Dosage: 5 MILLIGRAM
     Route: 048
     Dates: start: 20101222, end: 20101228
  66. REVLIMID [Suspect]
     Dosage: 10 MILLIGRAM
     Route: 048
     Dates: start: 20101229, end: 20110104
  67. REVLIMID [Suspect]
     Dosage: 25 MILLIGRAM
     Route: 048
     Dates: start: 20110111, end: 20110124

REACTIONS (5)
  - Leukoencephalopathy [Not Recovered/Not Resolved]
  - Liver function test abnormal [Recovered/Resolved]
  - Gastritis [Recovering/Resolving]
  - Cholelithiasis [Recovering/Resolving]
  - Neutropenia [Recovered/Resolved]
